FAERS Safety Report 5711254-3 (Version None)
Quarter: 2008Q2

REPORT INFORMATION
  Report Type: 
  Country: None (occurrence: None)
  Receive Date: 20080418
  Receipt Date: 20080407
  Transmission Date: 20081010
  Serious: Yes (Other)
  Sender: FDA-Public Use
  Company Number: 08H-163-0314152-00

PATIENT
  Age: 16 Year
  Sex: Male
  Weight: 48.8 kg

DRUGS (6)
  1. CIPROFLOXACIN INJECTION, USP, 10 MG/ML (CIPROFLOXACIN INJECTION) (CIPR [Suspect]
     Indication: PERIRECTAL ABSCESS
     Dosage: 400 MG, 2 IN 1 D, INTRAVENOUS
     Route: 042
  2. METRONIDAZOLE [Concomitant]
  3. METHYLPREDNISOLONE [Concomitant]
  4. MESALAMINE [Concomitant]
  5. LANSOPRAZOLE [Concomitant]
  6. AZATHIOPRAZOLE (AZATHIOPRAZOLE) [Concomitant]

REACTIONS (2)
  - BRADYCARDIA [None]
  - ELECTROCARDIOGRAM QT PROLONGED [None]
